FAERS Safety Report 13469075 (Version 1)
Quarter: 2017Q2

REPORT INFORMATION
  Report Type: Spontaneous
  Country: GB (occurrence: GB)
  Receive Date: 20170421
  Receipt Date: 20170421
  Transmission Date: 20170830
  Serious: Yes (Disabling)
  Sender: FDA-Public Use
  Company Number: GB-LABORATOIRE HRA PHARMA-1065666

PATIENT
  Age: 45 Year
  Sex: Female
  Weight: 99 kg

DRUGS (13)
  1. DESMOPRESSIN [Concomitant]
     Active Substance: DESMOPRESSIN
     Dates: start: 20170222, end: 20170324
  2. ESTRADIOL. [Concomitant]
     Active Substance: ESTRADIOL
     Dates: start: 20160420, end: 20160420
  3. FERROUS SULFATE. [Concomitant]
     Active Substance: FERROUS SULFATE
     Dates: start: 20170124, end: 20170223
  4. RANITIDINE. [Concomitant]
     Active Substance: RANITIDINE
     Dates: start: 20170124, end: 20170124
  5. MOMETASONE [Concomitant]
     Active Substance: MOMETASONE
     Route: 045
     Dates: start: 20170228, end: 20170328
  6. CALCIUM CARBONATE. [Concomitant]
     Active Substance: CALCIUM CARBONATE
     Dates: start: 20160420
  7. FOLIC ACID. [Concomitant]
     Active Substance: FOLIC ACID
     Dates: start: 20170214, end: 20170214
  8. HYDROCORTISONE. [Concomitant]
     Active Substance: HYDROCORTISONE
     Dates: start: 20170113
  9. LISINOPRIL. [Concomitant]
     Active Substance: LISINOPRIL
     Dates: start: 20160420, end: 20160420
  10. METOPIRONE [Suspect]
     Active Substance: METYRAPONE
     Dates: start: 20161025
  11. HEPATITIS A VACCINE INACT [Concomitant]
     Dates: start: 20170307, end: 20170308
  12. LEVOTHYROXINE. [Concomitant]
     Active Substance: LEVOTHYROXINE
     Dates: start: 20160420
  13. TETANUS VACCINE TOXOID [Concomitant]
     Dates: start: 20170307, end: 20170308

REACTIONS (1)
  - Paranoia [Recovered/Resolved]

NARRATIVE: CASE EVENT DATE: 20170405
